FAERS Safety Report 10242297 (Version 2)
Quarter: 2014Q3

REPORT INFORMATION
  Report Type: Spontaneous
  Country: US (occurrence: US)
  Receive Date: 20140617
  Receipt Date: 20140909
  Transmission Date: 20150326
  Serious: Yes (Death)
  Sender: FDA-Public Use
  Company Number: US-PFIZER INC-2014162390

PATIENT
  Age: 79 Year
  Sex: Male

DRUGS (1)
  1. INLYTA [Suspect]
     Active Substance: AXITINIB
     Indication: PROSTATE CANCER
     Dosage: 5 MG, UNK

REACTIONS (3)
  - Disease progression [Fatal]
  - Prostate cancer [Fatal]
  - Off label use [Unknown]
